FAERS Safety Report 12985552 (Version 10)
Quarter: 2018Q1

REPORT INFORMATION
  Report Type: Spontaneous
  Country: US (occurrence: US)
  Receive Date: 20161130
  Receipt Date: 20180102
  Transmission Date: 20180508
  Serious: Yes (Other)
  Sender: FDA-Public Use
  Company Number: PHEH2016US031109

PATIENT
  Sex: Female
  Weight: 81.63 kg

DRUGS (2)
  1. ZOFRAN [Suspect]
     Active Substance: ONDANSETRON HYDROCHLORIDE
     Indication: VOMITING IN PREGNANCY
     Dosage: 08 MG, PRN
     Route: 048
     Dates: start: 20030108, end: 2005
  2. ZOFRAN [Suspect]
     Active Substance: ONDANSETRON HYDROCHLORIDE
     Indication: PRODUCT USED FOR UNKNOWN INDICATION
     Route: 065

REACTIONS (13)
  - Gestational hypertension [Unknown]
  - Head injury [Unknown]
  - Injury [Unknown]
  - Facial pain [Unknown]
  - Contusion [Unknown]
  - Visual impairment [Unknown]
  - Eye swelling [Unknown]
  - Product use in unapproved indication [Unknown]
  - Maternal exposure during pregnancy [Unknown]
  - Emotional distress [Unknown]
  - Oedema [Unknown]
  - Dehydration [Unknown]
  - Headache [Unknown]
